FAERS Safety Report 5083648-3 (Version None)
Quarter: 2006Q3

REPORT INFORMATION
  Report Type: 
  Country: None (occurrence: None)
  Receive Date: 20060818
  Receipt Date: 20051003
  Transmission Date: 20061208
  Serious: Yes (Hospitalization)
  Sender: FDA-Public Use
  Company Number: GB-GILEAD-2005-0008758

PATIENT
  Age: 31 Year
  Sex: Female

DRUGS (9)
  1. VIREAD [Suspect]
     Indication: HIV INFECTION
  2. CIDOFOVIR [Suspect]
     Indication: DRUG USE FOR UNKNOWN INDICATION
  3. ZIDOVUDINE [Suspect]
     Indication: HIV INFECTION
  4. LAMIVUDINE [Suspect]
     Indication: HIV INFECTION
  5. EFAVIRENZ [Suspect]
     Indication: HIV INFECTION
  6. NEVIRAPINE [Suspect]
     Indication: HIV INFECTION
  7. DIDANOSINE [Suspect]
     Indication: HIV INFECTION
  8. CO-TRIMOXAZOLE [Concomitant]
     Indication: INFECTION PROPHYLAXIS
  9. LOPINAVIR [Concomitant]
     Indication: HIV INFECTION

REACTIONS (45)
  - AGITATION [None]
  - ANGIOPATHY [None]
  - APHASIA [None]
  - APRAXIA [None]
  - AREFLEXIA [None]
  - BALANCE DISORDER [None]
  - BLOOD BICARBONATE DECREASED [None]
  - BLOOD IMMUNOGLOBULIN A INCREASED [None]
  - BLOOD IMMUNOGLOBULIN G INCREASED [None]
  - BLOOD IMMUNOGLOBULIN M INCREASED [None]
  - BLOOD VISCOSITY INCREASED [None]
  - C-REACTIVE PROTEIN INCREASED [None]
  - CEREBELLAR SYNDROME [None]
  - CRANIAL NERVE DISORDER [None]
  - DEPRESSED MOOD [None]
  - DYSARTHRIA [None]
  - FALL [None]
  - FATIGUE [None]
  - GAZE PALSY [None]
  - HAEMOGLOBIN DECREASED [None]
  - HAEMORRHAGE [None]
  - HEADACHE [None]
  - HEMIPARESIS [None]
  - HEPATIC LESION [None]
  - HEPATITIS B ANTIGEN POSITIVE [None]
  - HEPATITIS E ANTIGEN POSITIVE [None]
  - HYPERREFLEXIA [None]
  - HYPERTONIA [None]
  - IMMUNE RECONSTITUTION SYNDROME [None]
  - LYMPHADENOPATHY [None]
  - MALAISE [None]
  - NAUSEA [None]
  - NECROSIS [None]
  - NUCLEAR MAGNETIC RESONANCE IMAGING BRAIN ABNORMAL [None]
  - PARALYSIS [None]
  - PLATELET COUNT INCREASED [None]
  - SOMNOLENCE [None]
  - SPLENIC LESION [None]
  - TEARFULNESS [None]
  - TUBERCULOSIS [None]
  - UPPER MOTOR NEURONE LESION [None]
  - VIITH NERVE PARALYSIS [None]
  - VIRAL HEPATITIS CARRIER [None]
  - VOMITING [None]
  - WHITE BLOOD CELL COUNT INCREASED [None]
